FAERS Safety Report 11044985 (Version 3)
Quarter: 2015Q2

REPORT INFORMATION
  Report Type: Spontaneous
  Country: US (occurrence: US)
  Receive Date: 20150417
  Receipt Date: 20150617
  Transmission Date: 20150821
  Serious: Yes (Hospitalization)
  Sender: FDA-Public Use
  Company Number: US-PFIZER INC-2015128904

PATIENT
  Age: 64 Year
  Sex: Female
  Weight: 111 kg

DRUGS (2)
  1. LYRICA [Suspect]
     Active Substance: PREGABALIN
     Dosage: 20 MG, 3X/DAY
  2. LYRICA [Suspect]
     Active Substance: PREGABALIN
     Indication: NEUROPATHY PERIPHERAL
     Dosage: 50 MG, UNK

REACTIONS (5)
  - Malaise [Recovered/Resolved]
  - Fall [Recovered/Resolved]
  - Clostridium difficile colitis [Not Recovered/Not Resolved]
  - Pneumonia [Recovered/Resolved]
  - Head injury [Recovered/Resolved]
